FAERS Safety Report 6654126-2 (Version None)
Quarter: 2010Q1

REPORT INFORMATION
  Report Type: 
  Country: None (occurrence: None)
  Receive Date: 20100326
  Receipt Date: 20100317
  Transmission Date: 20100710
  Serious: Yes (Other)
  Sender: FDA-Public Use
  Company Number: BR-PFIZER INC-2009229707

PATIENT
  Age: 69 Year
  Sex: Female
  Weight: 55 kg

DRUGS (1)
  1. CELEBRA [Suspect]
     Indication: BACK PAIN
     Dosage: 200 MG, 2X/DAY
     Route: 048
     Dates: start: 20050101

REACTIONS (6)
  - ABDOMINAL PAIN [None]
  - BENIGN NEOPLASM OF BLADDER [None]
  - DRUG INEFFECTIVE [None]
  - POLLAKIURIA [None]
  - URETHRAL PAIN [None]
  - VAGINAL HAEMORRHAGE [None]
